FAERS Safety Report 22930027 (Version 4)
Quarter: 2024Q1

REPORT INFORMATION
  Report Type: Spontaneous
  Country: US (occurrence: US)
  Receive Date: 20230911
  Receipt Date: 20240129
  Transmission Date: 20240410
  Serious: Yes (Hospitalization)
  Sender: FDA-Public Use
  Company Number: US-PFIZER INC-202300294543

PATIENT
  Age: 66 Year
  Sex: Female

DRUGS (6)
  1. IBRANCE [Suspect]
     Active Substance: PALBOCICLIB
     Dosage: 1 TABLET DAILY, TAKE FOR 3 WEEKS ON AND 1 WEEK OFF
     Route: 048
     Dates: start: 20230901, end: 2023
  2. IBRANCE [Suspect]
     Active Substance: PALBOCICLIB
     Dosage: 1 TABLET DAILY, TAKE FOR 3 WEEKS ON AND 1 WEEK OFF
     Route: 048
     Dates: end: 20240123
  3. AMLODIPINE BESYLATE [Concomitant]
     Active Substance: AMLODIPINE BESYLATE
     Dosage: UNK
  4. ANASTROZOLE [Concomitant]
     Active Substance: ANASTROZOLE
     Dosage: UNK
  5. LEVOTHYROXINE SODIUM [Concomitant]
     Active Substance: LEVOTHYROXINE SODIUM
     Dosage: UNK
  6. FASLODEX [Concomitant]
     Active Substance: FULVESTRANT
     Dosage: UNK

REACTIONS (7)
  - Gastrointestinal disorder [Unknown]
  - Full blood count decreased [Recovering/Resolving]
  - Abdominal discomfort [Recovered/Resolved]
  - Dizziness [Unknown]
  - Swelling [Recovering/Resolving]
  - Bronchitis [Recovering/Resolving]
  - Neoplasm progression [Not Recovered/Not Resolved]

NARRATIVE: CASE EVENT DATE: 20230901
